FAERS Safety Report 4746309-3 (Version None)
Quarter: 2005Q3

REPORT INFORMATION
  Report Type: 
  Country: None (occurrence: None)
  Receive Date: 20050816
  Receipt Date: 20050816
  Transmission Date: 20060218
  Serious: Yes (Hospitalization)
  Sender: FDA-Public Use
  Company Number: None

PATIENT
  Age: 69 Year
  Sex: Male
  Weight: 84.369 kg

DRUGS (2)
  1. WARFARIN    6 MG [Suspect]
     Indication: ATRIAL FIBRILLATION
     Dosage: 6 MG   DAILY   ORAL
     Route: 048
     Dates: start: 19960410, end: 20050810
  2. WARFARIN    6 MG [Suspect]
     Indication: MITRAL VALVE REPLACEMENT
     Dosage: 6 MG   DAILY   ORAL
     Route: 048
     Dates: start: 19960410, end: 20050810

REACTIONS (13)
  - ATRIAL FIBRILLATION [None]
  - CHEST PAIN [None]
  - DIVERTICULUM [None]
  - DIZZINESS [None]
  - DYSPNOEA EXERTIONAL [None]
  - FAECES DISCOLOURED [None]
  - FATIGUE [None]
  - GASTRITIS [None]
  - HAEMOGLOBIN DECREASED [None]
  - HAEMORRHOIDS [None]
  - NAUSEA [None]
  - OCCULT BLOOD POSITIVE [None]
  - RECTAL HAEMORRHAGE [None]
